FAERS Safety Report 4413206-2 (Version None)
Quarter: 2004Q3

REPORT INFORMATION
  Report Type: 
  Country: None (occurrence: None)
  Receive Date: 20040802
  Receipt Date: 20040729
  Transmission Date: 20050211
  Serious: Yes (Life-Threatening, Hospitalization)
  Sender: FDA-Public Use
  Company Number: PHBS2004BR10023

PATIENT
  Age: 49 Year
  Sex: Female

DRUGS (3)
  1. ZOMETA [Suspect]
     Indication: BREAST CANCER METASTATIC
     Dosage: 4 MG
     Route: 065
  2. HERCEPTIN [Suspect]
     Route: 065
  3. FASLODEX [Suspect]
     Route: 065

REACTIONS (3)
  - COMA [None]
  - THROMBOCYTOPENIA [None]
  - ULCER HAEMORRHAGE [None]
